FAERS Safety Report 12921135 (Version 1)
Quarter: 2016Q4

REPORT INFORMATION
  Report Type: Spontaneous
  Country: NO (occurrence: NO)
  Receive Date: 20161107
  Receipt Date: 20161107
  Transmission Date: 20170207
  Serious: Yes (Death)
  Sender: FDA-Public Use
  Company Number: NO-B.I. PHARMACEUTICALS,INC./RIDGEFIELD-2016-21-000003

PATIENT
  Age: 83 Year
  Sex: Female
  Weight: 67 kg

DRUGS (2)
  1. ACTILYSE [Suspect]
     Active Substance: ALTEPLASE
     Indication: ISCHAEMIC CEREBRAL INFARCTION
     Dosage: DOSE CALCULATED AS RECOMMENDED IN HOSPITAL PROCEDURE FOR WEIGHT OF 67 KG
     Route: 065
     Dates: start: 20161015, end: 20161015
  2. TRANDATE [Concomitant]
     Active Substance: LABETALOL HYDROCHLORIDE
     Indication: HYPERTENSION
     Dosage: RECEIVED 30 MG BEFORE THROMBOLYTIC THERAPY, AND 10 MG AFTER THROMBOLYTIC THERAPY
     Route: 048
     Dates: start: 20161015, end: 20161015

REACTIONS (1)
  - Cerebral haemorrhage [Fatal]

NARRATIVE: CASE EVENT DATE: 20161015
